FAERS Safety Report 11183076 (Version 1)
Quarter: 2015Q2

REPORT INFORMATION
  Report Type: Spontaneous
  Country: US (occurrence: US)
  Receive Date: 20150611
  Receipt Date: 20150611
  Transmission Date: 20150821
  Serious: Yes (Hospitalization, Other)
  Sender: FDA-Public Use
  Company Number: US-BRISTOL-MYERS SQUIBB COMPANY-BMS-2015-035739

PATIENT
  Age: 73 Year
  Sex: Female
  Weight: 130.61 kg

DRUGS (1)
  1. ORENCIA [Suspect]
     Active Substance: ABATACEPT
     Indication: RHEUMATOID ARTHRITIS
     Dosage: 125 MG, QWK
     Route: 058

REACTIONS (4)
  - Pharyngitis [Unknown]
  - Ovarian neoplasm [Unknown]
  - Urinary tract infection [Unknown]
  - Hysterectomy [Unknown]

NARRATIVE: CASE EVENT DATE: 20140409
